FAERS Safety Report 22181217 (Version 1)
Quarter: 2023Q2

REPORT INFORMATION
  Report Type: Spontaneous
  Country: US (occurrence: None)
  Receive Date: 20230405
  Receipt Date: 20230405
  Transmission Date: 20230722
  Serious: Yes (Life-Threatening, Hospitalization, Disabling)
  Sender: FDA-Public Use
  Company Number: None

PATIENT
  Age: 24 Year
  Weight: 72 kg

DRUGS (4)
  1. POTASSIUM CITRATE [Suspect]
     Active Substance: POTASSIUM CITRATE
     Indication: Nephrocalcinosis
     Dosage: 1 TABLET TWICE A DAY ORAL
     Route: 048
     Dates: start: 20230306, end: 20230309
  2. POTASSIUM CITRATE [Suspect]
     Active Substance: POTASSIUM CITRATE
     Indication: Hypocitraturia
  3. GABAPENTIN [Concomitant]
     Active Substance: GABAPENTIN
  4. FAMOTIDINE [Concomitant]
     Active Substance: FAMOTIDINE

REACTIONS (22)
  - Anxiety [None]
  - Tremor [None]
  - Abdominal pain [None]
  - Restlessness [None]
  - Pollakiuria [None]
  - Abdominal discomfort [None]
  - Chest pain [None]
  - Thirst [None]
  - Palpitations [None]
  - Presyncope [None]
  - Blood potassium increased [None]
  - Blood calcium increased [None]
  - Weight decreased [None]
  - Red blood cell count increased [None]
  - Haemoglobin increased [None]
  - Haematocrit increased [None]
  - Blood pressure increased [None]
  - Sepsis [None]
  - Nausea [None]
  - Gastritis [None]
  - Nervousness [None]
  - Drug hypersensitivity [None]

NARRATIVE: CASE EVENT DATE: 20230309
